FAERS Safety Report 5662009-X (Version None)
Quarter: 2008Q1

REPORT INFORMATION
  Report Type: 
  Country: None (occurrence: None)
  Receive Date: 20080303
  Receipt Date: 20080213
  Transmission Date: 20080703
  Serious: Yes (Hospitalization)
  Sender: FDA-Public Use
  Company Number: WAES 0802DNK00009

PATIENT
  Age: 69 Year
  Sex: Female

DRUGS (9)
  1. FOSAMAX [Suspect]
     Indication: OSTEOPOROSIS
     Dosage: PO
     Route: 048
     Dates: start: 20050208, end: 20050831
  2. DICLOFENAC DEANOL [Suspect]
     Dosage: PO
     Route: 048
     Dates: start: 20030301
  3. ACETAMINOPHEN [Concomitant]
  4. ASPIRIN [Concomitant]
  5. CALCIUM (UNSPECIFIED) (+) VITAMIN D (UNS [Concomitant]
  6. PERINDOPRIL [Concomitant]
  7. SIMVASTATIN [Concomitant]
  8. TRAMADOL KCL [Concomitant]
  9. VALPROATE SODIUM [Concomitant]

REACTIONS (1)
  - DUODENAL ULCER PERFORATION [None]
